FAERS Safety Report 6506746-3 (Version None)
Quarter: 2009Q4

REPORT INFORMATION
  Report Type: 
  Country: None (occurrence: None)
  Receive Date: 20091221
  Receipt Date: 20091214
  Transmission Date: 20100525
  Serious: Yes (Hospitalization)
  Sender: FDA-Public Use
  Company Number: US-ASTRAZENECA-2009SE31836

PATIENT
  Age: 62 Year
  Sex: Female

DRUGS (3)
  1. LISINOPRIL [Suspect]
  2. HYDROCHLOROTHIAZIDE [Interacting]
     Indication: HYPERTENSION
  3. LITHIUM CARBONATE [Interacting]

REACTIONS (3)
  - DRUG INTERACTION [None]
  - MENTAL STATUS CHANGES [None]
  - THERAPEUTIC AGENT TOXICITY [None]
